FAERS Safety Report 8154058 (Version 3)
Quarter: 2015Q1

REPORT INFORMATION
  Report Type: Spontaneous
  Country: JP (occurrence: JP)
  Receive Date: 20110912
  Receipt Date: 20150119
  Transmission Date: 20150721
  Serious: Yes (Life-Threatening, Hospitalization, Disabling)
  Sender: FDA-Public Use
  Company Number: DKLU1061284

PATIENT
  Age: 15 Year
  Sex: Female
  Weight: 42 kg

DRUGS (14)
  1. IFOMIDE [Suspect]
     Active Substance: IFOSFAMIDE
     Indication: ALVEOLAR RHABDOMYOSARCOMA
     Route: 042
     Dates: start: 20091109, end: 20091113
  2. CISPLATIN. [Concomitant]
     Active Substance: CISPLATIN
     Indication: ALVEOLAR RHABDOMYOSARCOMA
     Route: 065
  3. COSMEGEN [Suspect]
     Active Substance: DACTINOMYCIN
     Indication: ALVEOLAR RHABDOMYOSARCOMA
     Route: 042
     Dates: start: 20091109, end: 20091113
  4. ONCOVIN [Suspect]
     Active Substance: VINCRISTINE SULFATE
     Indication: ALVEOLAR RHABDOMYOSARCOMA
     Route: 042
     Dates: start: 20091109, end: 20091119
  5. VINCRISTINE [Concomitant]
     Active Substance: VINCRISTINE
     Route: 065
     Dates: start: 201404
  6. DORMICUM [Suspect]
     Active Substance: MIDAZOLAM\MIDAZOLAM HYDROCHLORIDE
     Indication: VOMITING
     Route: 065
     Dates: start: 20091109, end: 20091119
  7. CYCLOPHOSPHAMIDE. [Concomitant]
     Active Substance: CYCLOPHOSPHAMIDE
     Indication: ALVEOLAR RHABDOMYOSARCOMA
     Route: 065
  8. VINCRISTINE [Concomitant]
     Active Substance: VINCRISTINE
     Indication: ALVEOLAR RHABDOMYOSARCOMA
     Route: 065
  9. LASTET [Suspect]
     Active Substance: ETOPOSIDE
     Indication: ALVEOLAR RHABDOMYOSARCOMA
     Route: 042
     Dates: start: 20091109, end: 20091113
  10. DORMICUM [Suspect]
     Active Substance: MIDAZOLAM\MIDAZOLAM HYDROCHLORIDE
     Route: 065
     Dates: start: 20091120, end: 20091130
  11. PIRARUBICIN [Concomitant]
     Active Substance: PIRARUBICIN
     Indication: ALVEOLAR RHABDOMYOSARCOMA
     Route: 065
  12. COSMEGEN [Suspect]
     Active Substance: DACTINOMYCIN
     Route: 042
     Dates: start: 201004
  13. CYCLOPHOSPHAMIDE. [Concomitant]
     Active Substance: CYCLOPHOSPHAMIDE
     Route: 065
     Dates: start: 201004
  14. ETOPOSIDE. [Concomitant]
     Active Substance: ETOPOSIDE
     Indication: ALVEOLAR RHABDOMYOSARCOMA
     Route: 065

REACTIONS (11)
  - Respiratory failure [Recovering/Resolving]
  - Disseminated intravascular coagulation [Recovering/Resolving]
  - Hepatic function abnormal [Recovering/Resolving]
  - Bedridden [None]
  - Multi-organ failure [None]
  - Continuous haemodiafiltration [None]
  - Acute kidney injury [Recovering/Resolving]
  - Quality of life decreased [None]
  - Altered state of consciousness [Recovering/Resolving]
  - Bone marrow failure [Recovered/Resolved]
  - Rhabdomyolysis [Recovered/Resolved with Sequelae]

NARRATIVE: CASE EVENT DATE: 20091116
